FAERS Safety Report 4281322-4 (Version None)
Quarter: 2004Q1

REPORT INFORMATION
  Report Type: 
  Country: None (occurrence: None)
  Receive Date: 20040129
  Receipt Date: 20031114
  Transmission Date: 20041129
  Serious: Yes (Other)
  Sender: FDA-Public Use
  Company Number: NZ-ROCHE-351707

PATIENT
  Age: 62 Year
  Sex: Female

DRUGS (2)
  1. ROACCUTANE [Suspect]
     Indication: ROSACEA
     Dosage: EACH DOSING REGIMEN TAKEN ON ALTERNATE DAYS.
     Route: 048
  2. PREDNISOLONE [Suspect]
     Indication: POLYMYALGIA RHEUMATICA
     Route: 048

REACTIONS (1)
  - RED BLOOD CELL SEDIMENTATION RATE INCREASED [None]
